FAERS Safety Report 4362805-5 (Version None)
Quarter: 2004Q2

REPORT INFORMATION
  Report Type: 
  Country: None (occurrence: None)
  Receive Date: 20040518
  Receipt Date: 20040506
  Transmission Date: 20050107
  Serious: Yes (Death, Hospitalization)
  Sender: FDA-Public Use
  Company Number: US-SHR-04-021771

PATIENT
  Age: 64 Year
  Sex: Male
  Weight: 89.3 kg

DRUGS (15)
  1. CAMPATH [Suspect]
     Indication: B-CELL SMALL LYMPHOCYTIC LYMPHOMA
     Dosage: 3/10/30 MG DOSE ESCALATION, INTRAVENOUS
     Route: 042
     Dates: start: 20021021, end: 20030103
  2. CAMPATH [Suspect]
     Indication: CHRONIC LYMPHOCYTIC LEUKAEMIA
     Dosage: 3/10/30 MG DOSE ESCALATION, INTRAVENOUS
     Route: 042
     Dates: start: 20021021, end: 20030103
  3. ANTIEMETICS AND ANTINAUSEANTS [Concomitant]
  4. BENADRYL/OLD FORM/(DIPHENHYDRAMINDE HYDROCHLORIDE) [Concomitant]
  5. SOLU-MEDROL/USA/ (METHYLPREDNISONE SODIUM SUCCINATE) [Concomitant]
  6. SODIUM CHLORIDE 0.9% [Concomitant]
  7. SEPTRA DS [Concomitant]
  8. ACYCLOVIR [Concomitant]
  9. PREDNISONE [Concomitant]
  10. DIGOXIN [Concomitant]
  11. LOVENOX [Concomitant]
  12. FAMVIR [Concomitant]
  13. CARDIZEM [Concomitant]
  14. POTASSIUM [Concomitant]
  15. FLOMAX ^CSL^ (TAMSULOSIN HYDROCHLORIDE) [Concomitant]

REACTIONS (7)
  - CENTRAL NERVOUS SYSTEM LYMPHOMA [None]
  - CHRONIC LYMPHOCYTIC LEUKAEMIA [None]
  - DEMENTIA [None]
  - MALIGNANT NEOPLASM PROGRESSION [None]
  - MENTAL STATUS CHANGES [None]
  - OPPORTUNISTIC INFECTION [None]
  - PSYCHOTIC DISORDER [None]
